FAERS Safety Report 6677141-1 (Version None)
Quarter: 2010Q2

REPORT INFORMATION
  Report Type: 
  Country: None (occurrence: None)
  Receive Date: 20100402
  Receipt Date: 20090825
  Transmission Date: 20101027
  Serious: No
  Sender: FDA-Public Use
  Company Number: 2009-00506

PATIENT
  Age: 23 Year
  Sex: Female

DRUGS (1)
  1. ZICAM EXTREME CONGESTION RELIEF [Suspect]

REACTIONS (2)
  - AGEUSIA [None]
  - ANOSMIA [None]
